FAERS Safety Report 24441376 (Version 2)
Quarter: 2024Q4

REPORT INFORMATION
  Report Type: Spontaneous
  Country: US (occurrence: US)
  Receive Date: 20241016
  Receipt Date: 20241017
  Transmission Date: 20250115
  Serious: No
  Sender: ROCHE
  Company Number: US-ROCHE-3469899

PATIENT
  Age: 18 Month
  Sex: Male

DRUGS (1)
  1. HEMLIBRA [Suspect]
     Active Substance: EMICIZUMAB-KXWH
     Indication: Factor VIII deficiency
     Route: 065
     Dates: start: 202302

REACTIONS (4)
  - Injection site reaction [Unknown]
  - Injection site rash [Unknown]
  - Injection site haematoma [Unknown]
  - Contusion [Unknown]
